FAERS Safety Report 8238766-5 (Version None)
Quarter: 2012Q1

REPORT INFORMATION
  Report Type: 
  Country: None (occurrence: None)
  Receive Date: 20120327
  Receipt Date: 20120322
  Transmission Date: 20120608
  Serious: Yes (Other)
  Sender: FDA-Public Use
  Company Number: IE-JNJFOC-20120312236

PATIENT
  Age: 53 Year
  Sex: Male

DRUGS (1)
  1. NICORETTE [Suspect]
     Indication: PRODUCT USED FOR UNKNOWN INDICATION
     Dosage: 15 PIECES A DAY
     Route: 048

REACTIONS (2)
  - INTENTIONAL DRUG MISUSE [None]
  - PERIPHERAL VASCULAR DISORDER [None]
